FAERS Safety Report 7163298-5 (Version None)
Quarter: 2010Q4

REPORT INFORMATION
  Report Type: 
  Country: None (occurrence: None)
  Receive Date: 20101215
  Receipt Date: 20100323
  Transmission Date: 20110411
  Serious: Yes (Other)
  Sender: FDA-Public Use
  Company Number: FR-PFIZER INC-2010037066

PATIENT
  Age: 17 Year
  Sex: Male

DRUGS (2)
  1. LYRICA [Suspect]
     Dosage: UNK
  2. BROMAZEPAM [Suspect]
     Dosage: UNK

REACTIONS (1)
  - INTENTIONAL DRUG MISUSE [None]
